FAERS Safety Report 15778053 (Version 1)
Quarter: 2018Q4

REPORT INFORMATION
  Report Type: Spontaneous
  Country: JP (occurrence: JP)
  Receive Date: 20181231
  Receipt Date: 20181231
  Transmission Date: 20190205
  Serious: Yes (Other)
  Sender: FDA-Public Use
  Company Number: JP-SEATTLE GENETICS-2018SGN02947

PATIENT
  Age: 8 Decade

DRUGS (2)
  1. ADCETRIS [Suspect]
     Active Substance: BRENTUXIMAB VEDOTIN
     Indication: PERIPHERAL T-CELL LYMPHOMA UNSPECIFIED
  2. ADCETRIS [Suspect]
     Active Substance: BRENTUXIMAB VEDOTIN
     Indication: HODGKIN^S DISEASE
     Dosage: 1.8 MG/KG, Q21D
     Route: 041
     Dates: start: 20181017

REACTIONS (5)
  - Neutrophil count decreased [Recovered/Resolved]
  - Hodgkin^s disease [Unknown]
  - Off label use [Unknown]
  - Peripheral T-cell lymphoma unspecified [Unknown]
  - Disease progression [Unknown]

NARRATIVE: CASE EVENT DATE: 20181107
